FAERS Safety Report 10721905 (Version 5)
Quarter: 2015Q2

REPORT INFORMATION
  Report Type: Spontaneous
  Country: US (occurrence: US)
  Receive Date: 20150119
  Receipt Date: 20150625
  Transmission Date: 20150821
  Serious: Yes (Disabling, Other)
  Sender: FDA-Public Use
  Company Number: US-009507513-1204USA04496

PATIENT
  Sex: Male
  Weight: 80.73 kg

DRUGS (4)
  1. FINASTERIDE. [Suspect]
     Active Substance: FINASTERIDE
     Dosage: 1 MG, UNK
     Route: 048
     Dates: start: 2006, end: 2010
  2. PROPECIA [Suspect]
     Active Substance: FINASTERIDE
     Indication: ALOPECIA
     Dosage: 1 MG, QD
     Route: 048
     Dates: start: 2006, end: 2010
  3. FINASTERIDE. [Suspect]
     Active Substance: FINASTERIDE
     Indication: ALOPECIA
     Dosage: 5 MG, UNK
     Route: 048
     Dates: start: 2006, end: 2010
  4. PROPECIA [Suspect]
     Active Substance: FINASTERIDE
     Dosage: UNK
     Route: 048
     Dates: start: 201103, end: 201104

REACTIONS (33)
  - Anxiety [Not Recovered/Not Resolved]
  - Ejaculation failure [Not Recovered/Not Resolved]
  - Hormone level abnormal [Unknown]
  - Bite [Unknown]
  - Social phobia [Unknown]
  - Gynaecomastia [Unknown]
  - Cognitive disorder [Not Recovered/Not Resolved]
  - Libido decreased [Not Recovered/Not Resolved]
  - Circadian rhythm sleep disorder [Unknown]
  - Gastrooesophageal reflux disease [Unknown]
  - Ejaculation disorder [Not Recovered/Not Resolved]
  - Asthma [Unknown]
  - Anaemia [Unknown]
  - Visual impairment [Unknown]
  - Attention deficit/hyperactivity disorder [Unknown]
  - Sexual dysfunction [Not Recovered/Not Resolved]
  - Fatigue [Unknown]
  - Hypothyroidism [Unknown]
  - Neck mass [Unknown]
  - Urinary tract infection [Unknown]
  - Dizziness [Unknown]
  - Depression [Not Recovered/Not Resolved]
  - Weight increased [Unknown]
  - Asthenia [Unknown]
  - Cholecystectomy [Unknown]
  - Dry skin [Unknown]
  - Erectile dysfunction [Not Recovered/Not Resolved]
  - Varicocele [Unknown]
  - Amnesia [Unknown]
  - Drug ineffective [Unknown]
  - Muscular weakness [Unknown]
  - Hyperlipidaemia [Unknown]
  - Dysthymic disorder [Unknown]

NARRATIVE: CASE EVENT DATE: 2006
